FAERS Safety Report 9329370 (Version 3)
Quarter: 2013Q3

REPORT INFORMATION
  Report Type: Report from Study
  Country: DE (occurrence: DE)
  Receive Date: 20130604
  Receipt Date: 20130918
  Transmission Date: 20140515
  Serious: Yes (Hospitalization, Disabling)
  Sender: FDA-Public Use
  Company Number: DE-VIIV HEALTHCARE LIMITED-B0896476A

PATIENT
  Age: 69 Year
  Sex: Male

DRUGS (21)
  1. MARAVIROC [Suspect]
     Indication: HIV INFECTION
     Dosage: 300MG TWICE PER DAY
     Route: 048
     Dates: start: 20100701
  2. FOSAMPRENAVIR [Concomitant]
     Dosage: 700MG TWICE PER DAY
     Route: 048
     Dates: start: 20060509
  3. RITONAVIR [Concomitant]
     Dosage: 100MG TWICE PER DAY
     Route: 048
     Dates: start: 20060509
  4. MARCUMAR [Concomitant]
  5. PANTOZOL [Concomitant]
  6. ATACAND [Concomitant]
  7. SPIRIVA [Concomitant]
  8. ALLOPURINOL [Concomitant]
  9. HCT [Concomitant]
  10. OMEPRAZOLE [Concomitant]
  11. TAMSULOSIN [Concomitant]
     Dates: start: 20090602
  12. METOPROLOL [Concomitant]
     Dates: start: 20110316
  13. BUDESONID [Concomitant]
     Dates: start: 20110316
  14. MIRTAZAPIN [Concomitant]
     Dates: start: 20110316
  15. PAROXETIN [Concomitant]
     Dates: start: 20110316
  16. NOVODIGAL [Concomitant]
     Dates: start: 20110825
  17. TORASEMID [Concomitant]
     Dates: start: 20110915
  18. PRAVASTATIN [Concomitant]
     Dates: start: 20120719
  19. GLURENORM [Concomitant]
     Dates: start: 20130115
  20. FUROSEMID [Concomitant]
  21. GLIMEPIRID [Concomitant]

REACTIONS (1)
  - Mental disorder due to a general medical condition [Not Recovered/Not Resolved]
